FAERS Safety Report 6744215-6 (Version None)
Quarter: 2010Q2

REPORT INFORMATION
  Report Type: 
  Country: None (occurrence: None)
  Receive Date: 20100525
  Receipt Date: 20100512
  Transmission Date: 20101027
  Serious: Yes (Hospitalization, Other)
  Sender: FDA-Public Use
  Company Number: 012236

PATIENT
  Age: 56 Year
  Sex: Male

DRUGS (2)
  1. ROTIGOTINE (ROTIGOTINE) [Suspect]
     Dosage: (6 MG QD TRANSDERMAL)
     Route: 062
  2. CARBIDOPA W/ENTACAPONE W/LEVODOPA [Concomitant]

REACTIONS (8)
  - ANXIETY [None]
  - CHEST PAIN [None]
  - DYSPNOEA [None]
  - HYPERHIDROSIS [None]
  - IRRITABLE BOWEL SYNDROME [None]
  - MICTURITION URGENCY [None]
  - MUSCLE SPASMS [None]
  - NOCTURIA [None]
